FAERS Safety Report 9148603 (Version 2)
Quarter: 2013Q2

REPORT INFORMATION
  Report Type: Spontaneous
  Country: US (occurrence: US)
  Receive Date: 20130308
  Receipt Date: 20130507
  Transmission Date: 20140414
  Serious: Yes (Other)
  Sender: FDA-Public Use
  Company Number: US-PERRIGO-13US002156

PATIENT
  Age: 0 Year
  Sex: Male
  Weight: 6.8 kg

DRUGS (1)
  1. ACETAMINOPHEN CHERRY DYE FREE 32 MG/ML 590 [Suspect]
     Indication: PAIN
     Dosage: 40 MG, SINGLE
     Route: 048
     Dates: start: 20130227, end: 20130227

REACTIONS (5)
  - Pallor [Recovered/Resolved]
  - Choking [Recovered/Resolved]
  - Off label use [Unknown]
  - Drug ineffective [Unknown]
  - Product quality issue [None]
